FAERS Safety Report 11313969 (Version 1)
Quarter: 2015Q3

REPORT INFORMATION
  Report Type: Spontaneous
  Country: IT (occurrence: IT)
  Receive Date: 20150727
  Receipt Date: 20150727
  Transmission Date: 20151125
  Serious: Yes (Other)
  Sender: FDA-Public Use
  Company Number: IT-TEVA-580628ACC

PATIENT
  Age: 57 Year
  Sex: Male

DRUGS (6)
  1. EXVIERA - 250 MG COMPRESSA RIVESTITA CON FILM - ABBVIE LTD [Suspect]
     Active Substance: DASABUVIR
     Indication: CHRONIC HEPATITIS C
     Dosage: 500 MILLIGRAM DAILY;
     Dates: start: 20150313, end: 20150706
  2. RIBAVIRIN. [Suspect]
     Active Substance: RIBAVIRIN
     Indication: CHRONIC HEPATITIS C
     Dosage: 800 MILLIGRAM DAILY;
     Dates: start: 20150313, end: 20150706
  3. VIEKIRAX - 12.5MG/75MG/50MG COMPRESSA RIVESTITA CON FILM [Suspect]
     Active Substance: OMBITASVIR\PARITAPREVIR\RITONAVIR
     Indication: CHRONIC HEPATITIS C
     Dosage: 12.5 MILLIGRAM DAILY;
     Dates: start: 20150313, end: 20150706
  4. LASITONE - 25 MG + 37 MG CAPSULE RIGIDE [Concomitant]
     Indication: PRODUCT USED FOR UNKNOWN INDICATION
  5. INDERAL - 40 MG COMPRESSE [Concomitant]
     Indication: PRODUCT USED FOR UNKNOWN INDICATION
  6. OMEPRAZOLE. [Concomitant]
     Active Substance: OMEPRAZOLE
     Indication: PRODUCT USED FOR UNKNOWN INDICATION

REACTIONS (1)
  - Mastitis [Unknown]

NARRATIVE: CASE EVENT DATE: 20150706
